FAERS Safety Report 14777961 (Version 6)
Quarter: 2019Q1

REPORT INFORMATION
  Report Type: Report from Study
  Country: US (occurrence: US)
  Receive Date: 20180419
  Receipt Date: 20190306
  Transmission Date: 20190417
  Serious: Yes (Other)
  Sender: FDA-Public Use
  Company Number: US-TESARO, INC-US-2018TSO01353

PATIENT
  Age: 59 Year
  Sex: Female

DRUGS (16)
  1. ZEJULA [Suspect]
     Active Substance: NIRAPARIB
     Dosage: 200 MG, UNK
     Route: 048
  2. ZEJULA [Suspect]
     Active Substance: NIRAPARIB
     Indication: OVARIAN CANCER
     Dosage: 300 MG, QD
     Route: 048
     Dates: start: 20170915
  3. ZEJULA [Suspect]
     Active Substance: NIRAPARIB
     Dosage: 200 MG, UNK
     Route: 048
     Dates: start: 201709
  4. VITAMIN B12 [Concomitant]
     Active Substance: CYANOCOBALAMIN
     Indication: PRODUCT USED FOR UNKNOWN INDICATION
     Dosage: UNK
     Route: 048
  5. ATENOLOL. [Concomitant]
     Active Substance: ATENOLOL
     Indication: PRODUCT USED FOR UNKNOWN INDICATION
     Dosage: 50 MG, QD
     Route: 048
  6. GLUCOSAMINE HCL [Concomitant]
     Active Substance: GLUCOSAMINE
     Indication: PRODUCT USED FOR UNKNOWN INDICATION
     Dosage: 1000 MG, UNK
     Route: 048
  7. ZEJULA [Suspect]
     Active Substance: NIRAPARIB
     Dosage: 200 MG, QD
     Dates: start: 20180323
  8. ZEJULA [Suspect]
     Active Substance: NIRAPARIB
     Dosage: 300 MG, QD
     Route: 048
  9. ZEJULA [Suspect]
     Active Substance: NIRAPARIB
     Dosage: 200 MG, QD
     Route: 048
  10. MULTIVITAMIN [Concomitant]
     Active Substance: VITAMINS
     Indication: PRODUCT USED FOR UNKNOWN INDICATION
     Dosage: UNK
     Route: 048
  11. STOOL SOFTENER (DOCUSATE) [Concomitant]
     Active Substance: DOCUSATE
     Indication: PRODUCT USED FOR UNKNOWN INDICATION
     Dosage: 100 MG, BID
     Route: 048
  12. ZEJULA [Suspect]
     Active Substance: NIRAPARIB
     Dosage: 200 MG, QD
     Route: 048
  13. GABAPENTIN. [Concomitant]
     Active Substance: GABAPENTIN
     Indication: PRODUCT USED FOR UNKNOWN INDICATION
     Dosage: 300 MG, QD (AT BED TIME)
     Route: 048
  14. EMLA [Concomitant]
     Active Substance: LIDOCAINE\PRILOCAINE
     Indication: PRODUCT USED FOR UNKNOWN INDICATION
     Dosage: APPLY SMALL AMOUT OVER PORT SITE 1 TO 1/2 HOURS PRIOR TO TREAMENT AND COVER WITH PLASTIC WRAP
  15. ZEJULA [Suspect]
     Active Substance: NIRAPARIB
     Dosage: 300 MG ALTERNATING WITH 200 MG QD
     Route: 048
     Dates: start: 201802, end: 20180314
  16. ZEJULA [Suspect]
     Active Substance: NIRAPARIB
     Dosage: 200 MG, QD
     Route: 048
     Dates: start: 20180412

REACTIONS (19)
  - Blood count abnormal [Unknown]
  - Red cell distribution width increased [Recovering/Resolving]
  - Eastern Cooperative Oncology Group performance status [Unknown]
  - Thyroid mass [Unknown]
  - Dyspnoea [Recovering/Resolving]
  - Palpitations [Not Recovered/Not Resolved]
  - Haematocrit decreased [Recovering/Resolving]
  - Ill-defined disorder [Unknown]
  - Carbohydrate antigen 125 increased [Not Recovered/Not Resolved]
  - Haemoglobin decreased [Recovering/Resolving]
  - Mean cell haemoglobin increased [Unknown]
  - Anaemia [Not Recovered/Not Resolved]
  - Mean cell volume increased [Unknown]
  - Haematotoxicity [Recovering/Resolving]
  - Paraesthesia [Unknown]
  - Bone marrow toxicity [Not Recovered/Not Resolved]
  - Red blood cell count decreased [Recovering/Resolving]
  - Blood glucose increased [Unknown]
  - Asthenia [Recovered/Resolved]

NARRATIVE: CASE EVENT DATE: 20180314
